FAERS Safety Report 7211374-0 (Version None)
Quarter: 2011Q1

REPORT INFORMATION
  Report Type: 
  Country: None (occurrence: None)
  Receive Date: 20110105
  Receipt Date: 20101108
  Transmission Date: 20110831
  Serious: Yes (Hospitalization, Disabling, Other)
  Sender: FDA-Public Use
  Company Number: US-BAYER-201013604NA

PATIENT
  Sex: Female
  Weight: 79.545 kg

DRUGS (21)
  1. YASMIN [Suspect]
     Indication: CEREBRAL INFARCTION
     Dosage: UNK
     Dates: start: 20030201, end: 20080114
  2. SEROQUEL [Concomitant]
     Dates: start: 20080118
  3. FLUOXETINE [Concomitant]
  4. DIURETICS [Concomitant]
  5. YASMIN [Suspect]
     Indication: HORMONE THERAPY
  6. OCELLA [Suspect]
     Indication: CEREBRAL INFARCTION
     Dosage: UNK
  7. PHENTERMINE [Concomitant]
  8. YASMIN [Suspect]
     Indication: ACNE
  9. CARDENE [Concomitant]
     Dosage: DRIP INTERMITTENTLY
  10. CYTOMEL [Concomitant]
  11. LEVAQUIN [Concomitant]
  12. CENTRUM [Concomitant]
  13. AMITRIPTYLINE [Concomitant]
  14. LEVOXYL [Concomitant]
  15. KEPPRA [Concomitant]
  16. YAZ [Suspect]
     Indication: HORMONE THERAPY
  17. OCELLA [Suspect]
     Indication: HORMONE THERAPY
  18. DILANTIN [Concomitant]
  19. YAZ [Suspect]
     Indication: CEREBRAL INFARCTION
     Dosage: UNK
  20. DIET PILLS [Concomitant]
  21. MOTRIN [Concomitant]

REACTIONS (12)
  - CONVULSION [None]
  - ANXIETY [None]
  - ABASIA [None]
  - SPEECH DISORDER [None]
  - MYOCARDIAL INFARCTION [None]
  - DEPRESSION [None]
  - HEMIPARESIS [None]
  - BRAIN INJURY [None]
  - APHAGIA [None]
  - RESTLESSNESS [None]
  - CEREBRAL INFARCTION [None]
  - MOOD DISORDER DUE TO A GENERAL MEDICAL CONDITION [None]
